FAERS Safety Report 9313670 (Version 4)
Quarter: 2013Q3

REPORT INFORMATION
  Report Type: Report from Study
  Country: DE (occurrence: DE)
  Receive Date: 20130529
  Receipt Date: 20130924
  Transmission Date: 20140515
  Serious: Yes (Hospitalization)
  Sender: FDA-Public Use
  Company Number: DE-AMGEN-DEUCT2013037318

PATIENT
  Age: 58 Year
  Sex: Female
  Weight: 75 kg

DRUGS (7)
  1. ETANERCEPT [Suspect]
     Indication: RHEUMATOID ARTHRITIS
     Dosage: 50 MG, WEEKLY
     Route: 058
     Dates: start: 20120706
  2. ETANERCEPT [Suspect]
     Indication: PSORIATIC ARTHROPATHY
  3. JEPROLOL [Concomitant]
     Indication: ESSENTIAL HYPERTENSION
     Dosage: 200 MG, 2X/DAY
     Route: 048
  4. ENAHEXAL                           /00574902/ [Concomitant]
     Indication: ESSENTIAL HYPERTENSION
     Dosage: 20 MG, 2X/DAY
     Route: 048
  5. DEKRISTOL [Concomitant]
     Indication: PSORIATIC ARTHROPATHY
     Dosage: 20000 IU, WEEKLY
     Route: 048
     Dates: start: 200401
  6. PALEXIA [Concomitant]
     Indication: PSORIATIC ARTHROPATHY
     Dosage: 50 MG, 1X/DAY
     Route: 048
     Dates: start: 201103, end: 201209
  7. ARCOXIA [Concomitant]
     Indication: PSORIATIC ARTHROPATHY
     Dosage: 90 MG, 1X/DAY
     Route: 048
     Dates: start: 200709

REACTIONS (1)
  - Depression [Recovered/Resolved]
